FAERS Safety Report 8048184-0 (Version None)
Quarter: 2012Q1

REPORT INFORMATION
  Report Type: 
  Country: None (occurrence: None)
  Receive Date: 20120110
  Receipt Date: 20120104
  Transmission Date: 20120608
  Serious: Yes (Other)
  Sender: FDA-Public Use
  Company Number: A0952590A

PATIENT
  Age: 80 Year
  Sex: Male

DRUGS (1)
  1. UREA PEROXIDE [Suspect]
     Dosage: AURAL

REACTIONS (2)
  - DEAFNESS UNILATERAL [None]
  - DEAFNESS TRANSITORY [None]
